FAERS Safety Report 22901056 (Version 3)
Quarter: 2023Q4

REPORT INFORMATION
  Report Type: Spontaneous
  Country: FI (occurrence: FI)
  Receive Date: 20230904
  Receipt Date: 20231129
  Transmission Date: 20240110
  Serious: Yes (Other)
  Sender: FDA-Public Use
  Company Number: FI-SA-SAC20230904000293

PATIENT
  Age: 53 Year
  Sex: Male

DRUGS (1)
  1. DUPIXENT [Suspect]
     Active Substance: DUPILUMAB
     Indication: Nasal polyps
     Dosage: UNK
     Dates: start: 20221101

REACTIONS (15)
  - Eosinophilic granulomatosis with polyangiitis [Unknown]
  - Pneumonia [Unknown]
  - COVID-19 [Unknown]
  - Dyspnoea exertional [Unknown]
  - Cough [Unknown]
  - Inflammation [Unknown]
  - Vasculitis [Unknown]
  - Paraesthesia [Unknown]
  - Hypoaesthesia [Unknown]
  - Heart rate increased [Unknown]
  - Chest discomfort [Unknown]
  - Pyrexia [Unknown]
  - Fatigue [Unknown]
  - Epistaxis [Unknown]
  - Eosinophil count increased [Unknown]

NARRATIVE: CASE EVENT DATE: 20230108
